FAERS Safety Report 9240093 (Version 1)
Quarter: 2013Q2

REPORT INFORMATION
  Report Type: Spontaneous
  Country: US (occurrence: None)
  Receive Date: 20130417
  Receipt Date: 20130417
  Transmission Date: 20140414
  Serious: Yes (Hospitalization)
  Sender: FDA-Public Use
  Company Number: 1713747-2013-00003

PATIENT
  Sex: Male

DRUGS (1)
  1. DELFLEX [Suspect]
     Indication: RENAL FAILURE

REACTIONS (1)
  - Peritonitis [None]
